FAERS Safety Report 5698610-7 (Version None)
Quarter: 2008Q2

REPORT INFORMATION
  Report Type: 
  Country: None (occurrence: None)
  Receive Date: 20080408
  Receipt Date: 20061127
  Transmission Date: 20081010
  Serious: No
  Sender: FDA-Public Use
  Company Number: US-BAYER-US-2006-037014

PATIENT
  Age: 64 Year
  Sex: Female
  Weight: 66 kg

DRUGS (9)
  1. CLIMARA [Suspect]
     Indication: MENOPAUSAL SYMPTOMS
     Route: 062
     Dates: start: 20061027
  2. TYLENOL (CAPLET) [Concomitant]
  3. ASPIRIN [Concomitant]
  4. CENTRUM SILVER [Concomitant]
  5. HYDROCHLOROTHIAZIDE [Concomitant]
  6. TARKA [Concomitant]
  7. ISOSORBIDE DINITRATE [Concomitant]
  8. MOTRIN [Concomitant]
  9. PROMETHAZINE [Concomitant]

REACTIONS (1)
  - APPLICATION SITE RASH [None]
